FAERS Safety Report 8385513-2 (Version None)
Quarter: 2012Q2

REPORT INFORMATION
  Report Type: 
  Country: None (occurrence: None)
  Receive Date: 20120525
  Receipt Date: 20120522
  Transmission Date: 20120825
  Serious: No
  Sender: FDA-Public Use
  Company Number: US-BIOGENIDEC-2012BI017980

PATIENT
  Age: 40 Year
  Sex: Male

DRUGS (1)
  1. TYSABRI [Suspect]
     Indication: MULTIPLE SCLEROSIS
     Route: 042
     Dates: start: 20120514

REACTIONS (6)
  - PARAESTHESIA [None]
  - DIZZINESS [None]
  - CHEST DISCOMFORT [None]
  - HEADACHE [None]
  - DIZZINESS POSTURAL [None]
  - HYPOAESTHESIA [None]
